FAERS Safety Report 18563735 (Version 1)
Quarter: 2020Q4

REPORT INFORMATION
  Report Type: Spontaneous
  Country: NL (occurrence: NL)
  Receive Date: 20201201
  Receipt Date: 20201201
  Transmission Date: 20210114
  Serious: Yes (Other)
  Sender: FDA-Public Use
  Company Number: NL-TEVA-2020-NL-1853534

PATIENT
  Sex: Female
  Weight: 63 kg

DRUGS (2)
  1. ISOTRETINOINE CAPSULE ZACHT 20MG / BRAND NAME NOT SPECIFIED [Suspect]
     Active Substance: ISOTRETINOIN
     Indication: ACNE
     Dosage: 20 MILLIGRAM DAILY; THERAPY END DATE :ASKU
     Dates: start: 20200921
  2. ETHINYLESTRADIOL/LEVONORGESTREL TABLET 30/150UG / BRAND NAME NOT SPECI [Concomitant]
     Active Substance: ETHINYL ESTRADIOL\LEVONORGESTREL
     Dosage: 30/150 UG (MICROGRAM),THERAPY START DATE :ASKU,THERAPY END DATE :ASKU

REACTIONS (2)
  - Obsessive-compulsive personality disorder [Not Recovered/Not Resolved]
  - Depression [Not Recovered/Not Resolved]
